FAERS Safety Report 8353826-6 (Version None)
Quarter: 2012Q2

REPORT INFORMATION
  Report Type: 
  Country: None (occurrence: None)
  Receive Date: 20120511
  Receipt Date: 20111215
  Transmission Date: 20120825
  Serious: No
  Sender: FDA-Public Use
  Company Number: US-GLAXOSMITHKLINE-A0958498A

PATIENT
  Age: 65 Year
  Sex: Female
  Weight: 87 kg

DRUGS (9)
  1. XELODA [Concomitant]
  2. MICONAZOLE [Concomitant]
  3. HYDROCORTISONE [Concomitant]
  4. LEVETIRACETAM [Concomitant]
  5. TYKERB [Suspect]
     Indication: BREAST CANCER
     Dosage: 1250MG PER DAY
     Route: 048
     Dates: start: 20110225
  6. METOPROLOL TARTRATE [Concomitant]
  7. DEXAMETHASONE [Concomitant]
  8. ONDANSETRON [Concomitant]
  9. PRAVASTATIN [Concomitant]

REACTIONS (2)
  - FATIGUE [None]
  - SKIN CHAPPED [None]
